FAERS Safety Report 5776739-2 (Version None)
Quarter: 2008Q2

REPORT INFORMATION
  Report Type: 
  Country: None (occurrence: None)
  Receive Date: 20080618
  Receipt Date: 20080404
  Transmission Date: 20081010
  Serious: No
  Sender: FDA-Public Use
  Company Number: US-ASTRAZENECA-2008UW05457

PATIENT
  Age: 67 Year
  Sex: Female
  Weight: 83 kg

DRUGS (13)
  1. SYMBICORT [Suspect]
     Indication: ASTHMA
     Dosage: 80/4.5 MCG 1 ACTUATION DAILY
     Route: 055
     Dates: start: 20080315
  2. ADVAIR DISKUS 100/50 [Concomitant]
  3. CALCIUM [Concomitant]
  4. SPIRIVA [Concomitant]
  5. COZAAR [Concomitant]
  6. CELEBREX [Concomitant]
  7. METAMUCIL [Concomitant]
  8. MEVACOR [Concomitant]
  9. NOROTIN [Concomitant]
  10. ASPIRIN [Concomitant]
  11. XANAX [Concomitant]
  12. NORVADIN [Concomitant]
  13. ALBUTEROL [Concomitant]

REACTIONS (5)
  - APTYALISM [None]
  - DRUG INEFFECTIVE [None]
  - DRY MOUTH [None]
  - WHEEZING [None]
  - WRONG TECHNIQUE IN DRUG USAGE PROCESS [None]
